FAERS Safety Report 24076249 (Version 4)
Quarter: 2024Q3

REPORT INFORMATION
  Report Type: Spontaneous
  Country: AT (occurrence: AT)
  Receive Date: 20240711
  Receipt Date: 20240926
  Transmission Date: 20241017
  Serious: Yes (Other)
  Sender: Haleon PLC
  Company Number: AT-TEVA-VS-3215479

PATIENT
  Age: 56 Year
  Sex: Male

DRUGS (1)
  1. TERBINAFINE [Suspect]
     Active Substance: TERBINAFINE
     Indication: Product used for unknown indication
     Dosage: RATIOPHARM
     Route: 061

REACTIONS (2)
  - Thrombosis [Recovering/Resolving]
  - Peripheral swelling [Recovering/Resolving]

NARRATIVE: CASE EVENT DATE: 20240626
